FAERS Safety Report 11929985 (Version 2)
Quarter: 2016Q1

REPORT INFORMATION
  Report Type: Spontaneous
  Country: CH (occurrence: CH)
  Receive Date: 20160120
  Receipt Date: 20160127
  Transmission Date: 20160526
  Serious: Yes (Other)
  Sender: FDA-Public Use
  Company Number: CH-GE HEALTHCARE MEDICAL DIAGNOSTICS-OSCN-PR-1601L-0006

PATIENT
  Age: 65 Year
  Sex: Female

DRUGS (9)
  1. OMNISCAN [Suspect]
     Active Substance: GADODIAMIDE
     Indication: PRODUCT USED FOR UNKNOWN INDICATION
     Route: 065
     Dates: start: 199908, end: 199908
  2. GADOTERIDOL [Suspect]
     Active Substance: GADOTERIDOL
     Route: 065
     Dates: start: 200603, end: 200603
  3. GADOTERIDOL [Suspect]
     Active Substance: GADOTERIDOL
     Route: 065
     Dates: start: 200502, end: 200502
  4. OMNISCAN [Suspect]
     Active Substance: GADODIAMIDE
     Indication: DIAGNOSTIC PROCEDURE
  5. GADOTERIDOL [Suspect]
     Active Substance: GADOTERIDOL
     Route: 065
     Dates: start: 200409, end: 200409
  6. GADOTERIDOL [Suspect]
     Active Substance: GADOTERIDOL
     Indication: PRODUCT USED FOR UNKNOWN INDICATION
     Route: 065
     Dates: start: 200107, end: 200107
  7. GADOBUTROL [Suspect]
     Active Substance: GADOBUTROL
     Indication: PRODUCT USED FOR UNKNOWN INDICATION
     Route: 065
     Dates: start: 200501, end: 200501
  8. GADOBUTROL [Suspect]
     Active Substance: GADOBUTROL
     Indication: DIAGNOSTIC PROCEDURE
  9. GADOTERIDOL [Suspect]
     Active Substance: GADOTERIDOL
     Indication: DIAGNOSTIC PROCEDURE
     Route: 065
     Dates: start: 200404, end: 200404

REACTIONS (8)
  - Asthenia [Unknown]
  - Calciphylaxis [Unknown]
  - Skin necrosis [Unknown]
  - Confusional state [Unknown]
  - Nuclear magnetic resonance imaging brain abnormal [Unknown]
  - Loss of consciousness [Unknown]
  - Neurological symptom [Unknown]
  - Disturbance in attention [Unknown]

NARRATIVE: CASE EVENT DATE: 200911
